FAERS Safety Report 8153984-2 (Version None)
Quarter: 2012Q1

REPORT INFORMATION
  Report Type: 
  Country: None (occurrence: None)
  Receive Date: 20120221
  Receipt Date: 20120221
  Transmission Date: 20120608
  Serious: Yes (Other)
  Sender: FDA-Public Use
  Company Number: None

PATIENT
  Sex: Male
  Weight: 86.182 kg

DRUGS (2)
  1. CYMBALTA [Suspect]
     Indication: DEPRESSION
     Dosage: 60.0 MG
     Route: 048
  2. CYMBALTA [Suspect]
     Indication: ANXIETY
     Dosage: 60.0 MG
     Route: 048

REACTIONS (8)
  - DYSGRAPHIA [None]
  - TREMOR [None]
  - DYSSTASIA [None]
  - CONDITION AGGRAVATED [None]
  - HYPERHIDROSIS [None]
  - NEUROPATHY PERIPHERAL [None]
  - GAIT DISTURBANCE [None]
  - MUSCLE TWITCHING [None]
